FAERS Safety Report 6861521-5 (Version None)
Quarter: 2010Q3

REPORT INFORMATION
  Report Type: 
  Country: None (occurrence: None)
  Receive Date: 20100720
  Receipt Date: 20100712
  Transmission Date: 20110219
  Serious: Yes (Death, Other)
  Sender: FDA-Public Use
  Company Number: US-BRISTOL-MYERS SQUIBB COMPANY-15195076

PATIENT
  Age: 14 Year
  Sex: Male

DRUGS (6)
  1. CYCLOPHOSPHAMIDE [Suspect]
     Dosage: ON DAYS 1 TO 5, PRIOR TO TRANSPLANTATION
  2. PHENYTOIN [Suspect]
     Indication: CONVULSION PROPHYLAXIS
  3. CYCLOSPORINE [Suspect]
     Indication: IMMUNOSUPPRESSANT DRUG THERAPY
  4. PREDNISONE [Suspect]
     Indication: IMMUNOSUPPRESSANT DRUG THERAPY
  5. BUSULFAN [Suspect]
     Dosage: ON DAYS 6 TO 9, PRIOR TO TRANSPLANTATION
  6. MESNA [Concomitant]

REACTIONS (3)
  - DIABETES INSIPIDUS [None]
  - HAEMORRHAGE INTRACRANIAL [None]
  - SEPSIS [None]
